FAERS Safety Report 7788008-X (Version None)
Quarter: 2011Q3

REPORT INFORMATION
  Report Type: 
  Country: None (occurrence: None)
  Receive Date: 20110927
  Receipt Date: 20110912
  Transmission Date: 20111222
  Serious: Yes (Hospitalization, Other)
  Sender: FDA-Public Use
  Company Number: JPI-P-017020

PATIENT
  Age: 44 Year
  Sex: Male

DRUGS (6)
  1. XYREM [Suspect]
     Indication: CATAPLEXY
     Dosage: 4.5; 9 GM (2.25 GM, 2 IN 1 D), ORAL
     Route: 048
     Dates: start: 20110623, end: 20110101
  2. XYREM [Suspect]
     Indication: CATAPLEXY
     Dosage: 4.5; 9 GM (2.25 GM, 2 IN 1 D), ORAL
     Route: 048
     Dates: start: 20110712, end: 20110101
  3. METHYLPHENIDATE [Concomitant]
  4. AMPHETAMINES [Suspect]
     Indication: PRODUCT USED FOR UNKNOWN INDICATION
  5. BUPRENORPHINE HCL AND NALOXONE HCL [Concomitant]
  6. UNSPECIFIED ANTI-DEPRESSANT [Concomitant]

REACTIONS (5)
  - OVERDOSE [None]
  - BLOOD PRESSURE INCREASED [None]
  - DEHYDRATION [None]
  - CONFUSIONAL STATE [None]
  - TREATMENT NONCOMPLIANCE [None]
